FAERS Safety Report 8856766 (Version 1)
Quarter: 2012Q4

REPORT INFORMATION
  Report Type: 
  Country: US (occurrence: US)
  Receive Date: 20121023
  Receipt Date: 20121023
  Transmission Date: 20130627
  Serious: No
  Sender: FDA-Public Use
  Company Number: US-AMGEN-USASP2012056074

PATIENT
  Age: 63 Year
  Sex: Female

DRUGS (11)
  1. ENBREL [Suspect]
     Indication: PRODUCT USED FOR UNKNOWN INDICATION
     Dosage: 50 mg/ml, qwk
     Route: 058
  2. CLONAZEPAM [Concomitant]
     Dosage: 0.5 mg, UNK
  3. NAPROXEN [Concomitant]
     Dosage: 375 mg, UNK
  4. HYDROXYCHLOROQUINE [Concomitant]
     Dosage: 200 mg, UNK
  5. FLUOXETINE [Concomitant]
     Dosage: 10 mg, UNK
  6. HYDROCHLOROTH [Concomitant]
     Dosage: 12.5 mg, UNK
  7. GABAPENTIN [Concomitant]
     Dosage: 100 mg, UNK
  8. AVAPRO [Concomitant]
     Dosage: 75 mg, UNK
  9. LEVOTHYROXIN [Concomitant]
     Dosage: 25 mg, UNK
  10. OMEPRAZOLE [Concomitant]
     Dosage: 10 mg, UNK
  11. SIMVASTATIN [Concomitant]
     Dosage: 5 mg, UNK

REACTIONS (2)
  - Injection site induration [Unknown]
  - Injection site erythema [Unknown]
